FAERS Safety Report 9735479 (Version 1)
Quarter: 2013Q4

REPORT INFORMATION
  Report Type: Spontaneous
  Country: US (occurrence: US)
  Receive Date: 20131206
  Receipt Date: 20131206
  Transmission Date: 20140711
  Serious: No
  Sender: FDA-Public Use
  Company Number: US-GILEAD-2009-0023342

PATIENT
  Age: 68 Year
  Sex: Female

DRUGS (13)
  1. LETAIRIS [Suspect]
     Indication: PULMONARY ARTERIAL HYPERTENSION
     Route: 048
     Dates: start: 20090601
  2. FLOLAN [Suspect]
  3. TADALAFIL [Concomitant]
  4. WARFARIN [Concomitant]
  5. LEVOTHYROXINE [Concomitant]
  6. ATENOLOL [Concomitant]
  7. LISINOPRIL [Concomitant]
  8. CENTRUM [Concomitant]
  9. OMEGA 3 [Concomitant]
  10. PYRIDOXINE [Concomitant]
  11. CYANOCOBALAMINE [Concomitant]
  12. OCUVITE [Concomitant]
  13. FISH OIL [Concomitant]

REACTIONS (4)
  - Dry mouth [Not Recovered/Not Resolved]
  - Burning sensation [Unknown]
  - Abdominal distension [Unknown]
  - Anaemia [Not Recovered/Not Resolved]
